FAERS Safety Report 4652485-3 (Version None)
Quarter: 2005Q2

REPORT INFORMATION
  Report Type: 
  Country: None (occurrence: None)
  Receive Date: 20050502
  Receipt Date: 20050418
  Transmission Date: 20051028
  Serious: Yes (Death, Hospitalization)
  Sender: FDA-Public Use
  Company Number: ATO-05-0132

PATIENT
  Age: 73 Year
  Sex: Male

DRUGS (2)
  1. TRISENOX [Suspect]
     Indication: MYELODYSPLASTIC SYNDROME
     Dosage: 5X PER WK: 2WKS ON/2 WKS OFF), IVI
     Route: 042
     Dates: start: 20040708, end: 20040901
  2. THALOMID [Suspect]
     Indication: MYELODYSPLASTIC SYNDROME
     Dosage: 50 MG (50 MG, DAILY), ORAL
     Route: 048
     Dates: start: 20040708, end: 20040901

REACTIONS (3)
  - ANAEMIA [None]
  - FALL [None]
  - MALIGNANT NEOPLASM PROGRESSION [None]
